FAERS Safety Report 7209507-5 (Version None)
Quarter: 2011Q1

REPORT INFORMATION
  Report Type: 
  Country: None (occurrence: None)
  Receive Date: 20110104
  Receipt Date: 20101229
  Transmission Date: 20110831
  Serious: Yes (Other)
  Sender: FDA-Public Use
  Company Number: CA-AMGEN-CANSP2010012297

PATIENT

DRUGS (1)
  1. ENBREL [Suspect]
     Indication: ANKYLOSING SPONDYLITIS
     Dosage: 50 MG, QWK
     Dates: start: 20050225

REACTIONS (6)
  - HYPERSENSITIVITY [None]
  - SINUSITIS [None]
  - VISION BLURRED [None]
  - EYE PRURITUS [None]
  - BLISTER [None]
  - EYE DISORDER [None]
